FAERS Safety Report 4721860-0 (Version None)
Quarter: 2005Q3

REPORT INFORMATION
  Report Type: 
  Country: None (occurrence: None)
  Receive Date: 20050721
  Receipt Date: 20050513
  Transmission Date: 20060218
  Serious: No
  Sender: FDA-Public Use
  Company Number: US-BRISTOL-MYERS SQUIBB COMPANY-12968442

PATIENT
  Age: 73 Year
  Sex: Male
  Weight: 69 kg

DRUGS (7)
  1. COUMADIN [Suspect]
     Indication: ATRIAL FIBRILLATION
     Dosage: USUAL DOSAGE OF 1 MG DAILY WITH SOME VARIATION BY ADDING 2 MG TWO TIMES PER WEEK D/T LABWORK CHANGES
     Route: 048
     Dates: start: 20050401
  2. ASPIRIN [Concomitant]
  3. TERAZOSIN HCL [Concomitant]
  4. LITHIUM [Concomitant]
  5. ZOCOR [Concomitant]
  6. GABAPENTIN [Concomitant]
  7. HYDROCODONE BITARTRATE [Concomitant]
     Indication: PAIN IN EXTREMITY

REACTIONS (2)
  - DIARRHOEA [None]
  - MOUTH HAEMORRHAGE [None]
